FAERS Safety Report 16629256 (Version 1)
Quarter: 2019Q3

REPORT INFORMATION
  Report Type: Spontaneous
  Country: US (occurrence: US)
  Receive Date: 20190612
  Receipt Date: 20190612
  Transmission Date: 20191004
  Serious: Yes (Hospitalization)
  Sender: FDA-Public Use
  Company Number: None

PATIENT
  Age: 14 Year
  Sex: Female

DRUGS (2)
  1. TOBRAMYCIN (56AMPS/28DAY) 300MG/5ML LUPIN PHARMACEUTICALS [Suspect]
     Active Substance: TOBRAMYCIN
     Indication: QUADRIPLEGIA
     Route: 055
     Dates: start: 201706
  2. TOBRAMYCIN (56AMPS/28DAY) 300MG/5ML LUPIN PHARMACEUTICALS [Suspect]
     Active Substance: TOBRAMYCIN
     Indication: CEREBRAL PALSY
     Route: 055
     Dates: start: 201706

REACTIONS (3)
  - Respiratory distress [None]
  - Increased bronchial secretion [None]
  - Urinary tract infection [None]

NARRATIVE: CASE EVENT DATE: 201905
